FAERS Safety Report 10331454 (Version 3)
Quarter: 2014Q4

REPORT INFORMATION
  Report Type: Spontaneous
  Country: US (occurrence: None)
  Receive Date: 20140718
  Receipt Date: 20141114
  Transmission Date: 20150528
  Serious: Yes (Hospitalization)
  Sender: FDA-Public Use
  Company Number: 2014US0297

PATIENT
  Age: 4 Year
  Sex: Male
  Weight: 15.4 kg

DRUGS (4)
  1. TACROLIMUS (TACROLIMUS) [Suspect]
     Active Substance: TACROLIMUS
  2. ORFADIN [Suspect]
     Active Substance: NITISINONE
     Indication: TYROSINAEMIA
     Dosage: 0.5714 MG, 1 IN 1 WK, ORAL
     Route: 048
     Dates: start: 20140403, end: 20140708
  3. FLUTICASONE [Suspect]
     Active Substance: FLUTICASONE\FLUTICASONE PROPIONATE
     Indication: HYPERSENSITIVITY
     Dosage: 100 MCG, 2 IN 1, NASAL
     Route: 045
  4. PROGRAF [Concomitant]
     Active Substance: TACROLIMUS\TACROLIMUS ANHYDROUS

REACTIONS (2)
  - Eosinophilic oesophagitis [None]
  - Gastroenteritis viral [None]

NARRATIVE: CASE EVENT DATE: 201405
